FAERS Safety Report 8624664-1 (Version None)
Quarter: 2012Q3

REPORT INFORMATION
  Report Type: 
  Country: None (occurrence: None)
  Receive Date: 20120810
  Receipt Date: 20120727
  Transmission Date: 20120928
  Serious: Yes (Hospitalization, Other)
  Sender: FDA-Public Use
  Company Number: NSR_00603_2012

PATIENT
  Age: 3 Month
  Sex: Female

DRUGS (2)
  1. PROPRANOLOL [Suspect]
     Indication: HAEMANGIOMA CONGENITAL
     Dosage: 1 MG/KG, 3 X DAILY ORAL, 2 MG/KG, 3 X DAILY ORAL
     Route: 048
  2. PROPRANOLOL [Suspect]
     Indication: CONCOMITANT DISEASE PROGRESSION
     Dosage: 1 MG/KG, 3 X DAILY ORAL, 2 MG/KG, 3 X DAILY ORAL
     Route: 048

REACTIONS (5)
  - ULCER [None]
  - HYPERKALAEMIA [None]
  - WHITE BLOOD CELL COUNT INCREASED [None]
  - STAPHYLOCOCCAL INFECTION [None]
  - BLOOD LACTATE DEHYDROGENASE INCREASED [None]
